FAERS Safety Report 10362735 (Version 3)
Quarter: 2014Q4

REPORT INFORMATION
  Report Type: Spontaneous
  Country: US (occurrence: None)
  Receive Date: 20140730
  Receipt Date: 20141106
  Transmission Date: 20150528
  Serious: Yes (Death, Life-Threatening, Hospitalization)
  Sender: FDA-Public Use
  Company Number: 20140349

PATIENT
  Age: 72 Year
  Sex: Male
  Weight: 65 kg

DRUGS (28)
  1. NATURALYTE BICARBONATE [Suspect]
     Active Substance: SODIUM BICARBONATE
     Indication: PRODUCT USED FOR UNKNOWN INDICATION
     Dosage: UNK / UNK DOSAGE TEXT AND DATES
  2. GRANUFLO [Suspect]
     Active Substance: ACETIC ACID\SODIUM ACETATE
     Indication: PRODUCT USED FOR UNKNOWN INDICATION
     Dosage: UNK / UNK  DOSAGE INFORMATION
  3. NORVASC (AMLODIPINE) [Concomitant]
  4. PRILOSEC (OMEPRAZOLE) [Concomitant]
     Active Substance: OMEPRAZOLE MAGNESIUM
  5. VERSED (MIDAZOLAM) [Concomitant]
  6. PROTONIX (PANTOPRAZOLE) [Concomitant]
  7. SENAKOT (SENNOSIDES) [Concomitant]
  8. VASOTEC (ENALAPRIL) [Concomitant]
  9. COLACE [Concomitant]
     Active Substance: DOCUSATE SODIUM
  10. TYLENOL(ACETAMINOPHEN) [Concomitant]
  11. AMIODARONE [Concomitant]
     Active Substance: AMIODARONE
  12. ALLOPURINOL. [Concomitant]
     Active Substance: ALLOPURINOL
  13. ALBUTEROL. [Concomitant]
     Active Substance: ALBUTEROL
  14. HEPARIN [Concomitant]
     Active Substance: HEPARIN SODIUM
  15. DIPRIVAN (PROFOL) [Concomitant]
  16. VERSED (MIDAZOLAM) [Concomitant]
  17. ATROVENT (IPRATROPIUM) [Concomitant]
  18. NEPHROVITE (MULTI VITAMINS WITH IRON) [Concomitant]
  19. VENOFER [Suspect]
     Active Substance: IRON SUCROSE
     Indication: CHRONIC KIDNEY DISEASE
     Dosage: 50MG IVP INTRAVENOUS
     Route: 042
     Dates: start: 20120504, end: 20120601
  20. DILAUDID (HYDROMORPHINE) [Concomitant]
  21. INSULIN [Concomitant]
     Active Substance: INSULIN NOS
  22. FRESENIUS 2008K HEMODIALYSIS MACHINE [Suspect]
     Active Substance: DEVICE
     Dosage: UNK / UNK DOSAGE INFORMATION
  23. RENAGEL (SEVELAMER) [Concomitant]
  24. ENALAPRIL [Concomitant]
     Active Substance: ENALAPRIL
  25. FOLIC ACID. [Concomitant]
     Active Substance: FOLIC ACID
  26. SODIUM CHLORIDE. [Concomitant]
     Active Substance: SODIUM CHLORIDE
  27. METOPROLOL [Concomitant]
     Active Substance: METOPROLOL
  28. ASPIRIN. [Concomitant]
     Active Substance: ASPIRIN

REACTIONS (32)
  - Seizure [None]
  - Respiratory failure [None]
  - Haematocrit abnormal [None]
  - Myocardial infarction [None]
  - Fluid overload [None]
  - Cardio-respiratory arrest [None]
  - Haemodialysis [None]
  - Unresponsive to stimuli [None]
  - Cardiac arrest [None]
  - Pulse abnormal [None]
  - Respiratory arrest [None]
  - Pleural effusion [None]
  - Blood bicarbonate increased [None]
  - Pupil fixed [None]
  - Haemoglobin abnormal [None]
  - Pneumonia [None]
  - Hypokalaemia [None]
  - Electrolyte imbalance [None]
  - Pulse pressure decreased [None]
  - Lethargy [None]
  - Haemodialysis complication [None]
  - Cardiac failure congestive [None]
  - Apnoea [None]
  - Base excess increased [None]
  - Ventricular arrhythmia [None]
  - Loss of consciousness [None]
  - Hypopnoea [None]
  - Ventricular tachycardia [None]
  - Blood pressure systolic increased [None]
  - Blood pH increased [None]
  - Failure to thrive [None]
  - Confusional state [None]

NARRATIVE: CASE EVENT DATE: 20120504
